FAERS Safety Report 17632793 (Version 2)
Quarter: 2020Q4

REPORT INFORMATION
  Report Type: Spontaneous
  Country: NO (occurrence: NO)
  Receive Date: 20200406
  Receipt Date: 20201109
  Transmission Date: 20210113
  Serious: Yes (Hospitalization, Other)
  Sender: FDA-Public Use
  Company Number: NO-SA-2020SA085487

PATIENT

DRUGS (2)
  1. METHOTREXATE. [Concomitant]
     Active Substance: METHOTREXATE
     Indication: RHEUMATOID ARTHRITIS
     Dosage: 20 MG, QW
     Route: 065
     Dates: end: 201911
  2. ARAVA [Suspect]
     Active Substance: LEFLUNOMIDE
     Indication: RHEUMATOID ARTHRITIS
     Dosage: UNK
     Route: 065
     Dates: start: 20191114, end: 20191212

REACTIONS (13)
  - Fatigue [Unknown]
  - Abdominal pain upper [Unknown]
  - Pruritus [Recovering/Resolving]
  - Skin exfoliation [Recovering/Resolving]
  - Hepatic failure [Unknown]
  - General physical health deterioration [Unknown]
  - Alopecia [Unknown]
  - Skin discolouration [Recovering/Resolving]
  - Hepatitis toxic [Unknown]
  - Rash [Recovering/Resolving]
  - Sleep disorder [Unknown]
  - Blood bilirubin increased [Recovering/Resolving]
  - Dry skin [Recovering/Resolving]

NARRATIVE: CASE EVENT DATE: 201912
